FAERS Safety Report 5813799-4 (Version None)
Quarter: 2008Q3

REPORT INFORMATION
  Report Type: 
  Country: None (occurrence: None)
  Receive Date: 20080717
  Receipt Date: 20080715
  Transmission Date: 20090109
  Serious: Yes (Death, Life-Threatening, Hospitalization, Other)
  Sender: FDA-Public Use
  Company Number: PHEH2005US10405

PATIENT
  Sex: Male
  Weight: 140.59 kg

DRUGS (15)
  1. LAMISIL [Suspect]
     Indication: TINEA PEDIS
     Dosage: 250 MG, QD
     Route: 048
     Dates: start: 20050120, end: 20050501
  2. BIAXIN XL [Suspect]
     Dosage: (2) 500 MG TABS DAILY
     Route: 048
     Dates: start: 20050412, end: 20050801
  3. ANTIHYPERTENSIVES [Concomitant]
  4. LOTREL [Concomitant]
  5. NIZORAL [Concomitant]
     Indication: SEBORRHOEA
  6. DECADRON [Concomitant]
     Dosage: 8 MG, UNK
     Dates: start: 20050412, end: 20050801
  7. ASTELIN [Concomitant]
     Dosage: 2 SPRAYS TWICE DAILY
     Route: 045
     Dates: start: 20050412, end: 20050801
  8. NASONEX [Concomitant]
     Dosage: UNK, UNK
     Route: 045
     Dates: start: 20050412, end: 20050801
  9. FLONASE [Concomitant]
     Dosage: UNK, UNK
     Route: 045
     Dates: end: 20050801
  10. TRIAMCINOLONE ACETONIDE [Concomitant]
     Dosage: 60 MG, UNK
     Route: 030
     Dates: start: 20050412, end: 20050801
  11. FEXOFENADINE [Concomitant]
     Dates: end: 20050801
  12. NYSTATIN [Concomitant]
     Dates: end: 20050801
  13. ALBUTEROL [Concomitant]
  14. CIALIS ^GLAXOSMITHKLINE^ [Concomitant]
     Indication: ERECTILE DYSFUNCTION
  15. VIAGRA [Concomitant]
     Indication: ERECTILE DYSFUNCTION

REACTIONS (73)
  - ABDOMINAL PAIN [None]
  - ANAEMIA [None]
  - ANOREXIA [None]
  - ANXIETY [None]
  - APPETITE DISORDER [None]
  - ARTERIOVENOUS MALFORMATION [None]
  - ASTHENIA [None]
  - ASTHMA [None]
  - ATELECTASIS [None]
  - BILIARY DRAINAGE [None]
  - BILIARY TRACT DISORDER [None]
  - BIOPSY LIVER ABNORMAL [None]
  - BLOOD CREATININE INCREASED [None]
  - BRONCHITIS CHRONIC [None]
  - CHEST DISCOMFORT [None]
  - CHILLS [None]
  - CHOLESTASIS [None]
  - CHROMATURIA [None]
  - CHRONIC HEPATIC FAILURE [None]
  - COLONOSCOPY ABNORMAL [None]
  - COMPLICATIONS OF TRANSPLANTED LIVER [None]
  - COUGH [None]
  - DIALYSIS [None]
  - DIALYSIS DEVICE INSERTION [None]
  - DIAPHRAGMATIC DISORDER [None]
  - DIVERTICULUM [None]
  - DRUG INTERACTION [None]
  - DRY MOUTH [None]
  - DYSPNOEA [None]
  - EMOTIONAL DISTRESS [None]
  - ENTEROCOCCAL SEPSIS [None]
  - EYE IRRITATION [None]
  - FATIGUE [None]
  - FOOD INTOLERANCE [None]
  - GASTROINTESTINAL ARTERIOVENOUS MALFORMATION [None]
  - GASTROINTESTINAL MUCOSAL DISORDER [None]
  - GENERAL PHYSICAL HEALTH DETERIORATION [None]
  - HAEMATOCHEZIA [None]
  - HAEMATOCRIT DECREASED [None]
  - HAEMOCHROMATOSIS [None]
  - HAEMOGLOBIN DECREASED [None]
  - HEPATIC ENZYME INCREASED [None]
  - HEPATIC PAIN [None]
  - HEPATITIS [None]
  - HEPATORENAL SYNDROME [None]
  - HICCUPS [None]
  - HYPERBILIRUBINAEMIA [None]
  - HYPERTENSION [None]
  - HYPOTENSION [None]
  - INTESTINAL ULCER [None]
  - JAUNDICE [None]
  - LEUKOPLAKIA [None]
  - LIVER DISORDER [None]
  - LIVER TRANSPLANT [None]
  - NASAL CONGESTION [None]
  - NASOPHARYNGITIS [None]
  - NAUSEA [None]
  - OCULAR HYPERAEMIA [None]
  - OCULAR ICTERUS [None]
  - OROPHARYNGEAL PAIN [None]
  - PHARYNGITIS [None]
  - PHOTOSENSITIVITY REACTION [None]
  - POST PROCEDURAL BILE LEAK [None]
  - PRURITUS [None]
  - PYREXIA [None]
  - RENAL FAILURE ACUTE [None]
  - RESPIRATORY FAILURE [None]
  - RHINITIS ALLERGIC [None]
  - SPUTUM DISCOLOURED [None]
  - TONGUE COATED [None]
  - TONGUE DISCOLOURATION [None]
  - VOMITING [None]
  - WHEEZING [None]
